FAERS Safety Report 21054872 (Version 2)
Quarter: 2022Q3

REPORT INFORMATION
  Report Type: Spontaneous
  Country: US (occurrence: US)
  Receive Date: 20220707
  Receipt Date: 20220729
  Transmission Date: 20221026
  Serious: Yes (Hospitalization)
  Sender: FDA-Public Use
  Company Number: US-TEVA-2022-US-2052489

PATIENT
  Age: 39 Year
  Sex: Female

DRUGS (7)
  1. CYCLOSPORINE [Suspect]
     Active Substance: CYCLOSPORINE
     Indication: Large granular lymphocytosis
     Dosage: 200 MILLIGRAM DAILY;
     Route: 065
     Dates: start: 2016
  2. METHOTREXATE [Suspect]
     Active Substance: METHOTREXATE
     Indication: Large granular lymphocytosis
     Dosage: 2.1429 MILLIGRAM DAILY;
     Route: 048
     Dates: start: 2015
  3. PREDNISONE [Suspect]
     Active Substance: PREDNISONE
     Indication: Large granular lymphocytosis
     Route: 065
     Dates: start: 2015
  4. PREDNISONE [Suspect]
     Active Substance: PREDNISONE
     Indication: Large granular lymphocytosis
     Dosage: DOSE INCREASED
     Route: 065
     Dates: start: 2015
  5. PREDNISONE [Suspect]
     Active Substance: PREDNISONE
     Dosage: DOSE TAPERED
     Route: 065
  6. CYCLOPHOSPHAMIDE [Suspect]
     Active Substance: CYCLOPHOSPHAMIDE
     Indication: Large granular lymphocytosis
     Dosage: 100 MILLIGRAM DAILY;
     Route: 048
     Dates: start: 2015
  7. PENTOSTATIN [Suspect]
     Active Substance: PENTOSTATIN
     Indication: Large granular lymphocytosis
     Dosage: 2 CYCLES
     Route: 042
     Dates: start: 2016

REACTIONS (4)
  - Drug ineffective [Unknown]
  - Rebound effect [Recovered/Resolved]
  - Neutropenia [Recovered/Resolved]
  - Pathological fracture [Unknown]

NARRATIVE: CASE EVENT DATE: 20150101
